FAERS Safety Report 14829251 (Version 1)
Quarter: 2018Q2

REPORT INFORMATION
  Report Type: Spontaneous
  Country: US (occurrence: US)
  Receive Date: 20180430
  Receipt Date: 20180430
  Transmission Date: 20180711
  Serious: No
  Sender: FDA-Public Use
  Company Number: US-BAUSCH-BL-2017-025064

PATIENT
  Age: 64 Year
  Sex: Female

DRUGS (3)
  1. LOTEMAX [Suspect]
     Active Substance: LOTEPREDNOL ETABONATE
     Dosage: 1 DROP IN THE RIGHT EYE EVERY 1 HOUR
     Route: 047
  2. LOTEMAX [Suspect]
     Active Substance: LOTEPREDNOL ETABONATE
     Dosage: 1 DROP IN THE LEFT EYE EVERY 2 HOURS
     Route: 047
  3. LOTEMAX [Suspect]
     Active Substance: LOTEPREDNOL ETABONATE
     Indication: EYE INFLAMMATION
     Dosage: MANY YEARS PRIOR TO THE DATE OF THE INITIAL REPORT
     Route: 047

REACTIONS (2)
  - Eye disorder [Unknown]
  - Drug ineffective [Unknown]
